FAERS Safety Report 7449653-4 (Version None)
Quarter: 2011Q2

REPORT INFORMATION
  Report Type: 
  Country: None (occurrence: None)
  Receive Date: 20110502
  Receipt Date: 20110428
  Transmission Date: 20111010
  Serious: Yes (Life-Threatening, Hospitalization, Other)
  Sender: FDA-Public Use
  Company Number: US-ELI_LILLY_AND_COMPANY-US200812005658

PATIENT
  Sex: Female
  Weight: 80.726 kg

DRUGS (18)
  1. FUROSEMIDE [Concomitant]
     Indication: FLUID RETENTION
     Dosage: UNK, DAILY (1/D)
  2. ACETAMINOPHEN [Concomitant]
     Indication: PAIN
     Dosage: UNK, AS NEEDED
  3. COZAAR [Concomitant]
  4. AMARYL [Concomitant]
     Dosage: 4 MG, QD
  5. BYETTA [Suspect]
     Dosage: UNK, UNKNOWN
     Route: 065
     Dates: start: 20060314, end: 20060712
  6. PREVACID [Concomitant]
     Dosage: UNK, DAILY (1/D)
  7. DIGOXIN [Concomitant]
     Dosage: UNK, UNK
  8. GLIMEPIRIDE [Concomitant]
  9. DIAMOX SRC [Concomitant]
     Dosage: 500 MG, QD
  10. ACTOS [Concomitant]
     Dosage: UNK, UNK
  11. TAZTIA XT [Concomitant]
     Indication: HYPERTENSION
     Dosage: UNK, DAILY (1/D)
  12. GLYCOPYRROLATE [Concomitant]
  13. METOPROLOL SUCCINATE [Concomitant]
     Indication: HYPERTENSION
     Dosage: UNK, DAILY (1/D)
  14. ASPIRIN                                 /SCH/ [Concomitant]
  15. ADVAIR DISKUS 100/50 [Concomitant]
  16. METFORMIN [Concomitant]
     Indication: DIABETES MELLITUS
     Dosage: UNK, DAILY (1/D)
  17. ZYRTEC [Concomitant]
     Dosage: UNK, UNK
  18. COMBIVENT [Concomitant]

REACTIONS (8)
  - PLEURAL EFFUSION [None]
  - SEPSIS [None]
  - PANCREATITIS HAEMORRHAGIC [None]
  - PANCREATITIS [None]
  - PANCREATITIS CHRONIC [None]
  - RESPIRATORY FAILURE [None]
  - PANCREATITIS NECROTISING [None]
  - HYPERTRIGLYCERIDAEMIA [None]
